FAERS Safety Report 5530057-6 (Version None)
Quarter: 2007Q4

REPORT INFORMATION
  Report Type: 
  Country: None (occurrence: None)
  Receive Date: 20071107
  Receipt Date: 20071003
  Transmission Date: 20080405
  Serious: Yes (Hospitalization)
  Sender: FDA-Public Use
  Company Number: WSDF_00676

PATIENT
  Age: 44 Year
  Sex: Male
  Weight: 114.3065 kg

DRUGS (5)
  1. WINRHO SDF [Suspect]
     Indication: IDIOPATHIC THROMBOCYTOPENIC PURPURA
     Dosage: 75 ?G/KG ONCE IV
     Route: 042
     Dates: start: 20070829, end: 20070829
  2. PREDNISONE TAB [Concomitant]
  3. PRILOSEC [Concomitant]
  4. TYLENOL [Concomitant]
  5. BENADRYL [Concomitant]

REACTIONS (16)
  - ARTHRALGIA [None]
  - BLOOD PRESSURE INCREASED [None]
  - BONE MARROW OEDEMA [None]
  - CERVICAL SPINAL STENOSIS [None]
  - CHEST PAIN [None]
  - DEEP VEIN THROMBOSIS [None]
  - FIBRIN D DIMER INCREASED [None]
  - HAEMOLYTIC ANAEMIA [None]
  - HYPERGLYCAEMIA [None]
  - INTERVERTEBRAL DISC DEGENERATION [None]
  - JOINT RANGE OF MOTION DECREASED [None]
  - LEUKOCYTOSIS [None]
  - LIVER FUNCTION TEST ABNORMAL [None]
  - MUSCLE INJURY [None]
  - MYALGIA [None]
  - PAIN IN EXTREMITY [None]
